FAERS Safety Report 18252063 (Version 1)
Quarter: 2020Q3

REPORT INFORMATION
  Report Type: Spontaneous
  Country: US (occurrence: US)
  Receive Date: 20200910
  Receipt Date: 20200910
  Transmission Date: 20201103
  Serious: No
  Sender: FDA-Public Use
  Company Number: US-FARMAPROD-202003-0405

PATIENT
  Age: 89 Year
  Sex: Female

DRUGS (3)
  1. OXERVATE [Suspect]
     Active Substance: CENEGERMIN-BKBJ
     Indication: KERATITIS
     Route: 047
     Dates: start: 20200304, end: 20200410
  2. GABAPENTIN. [Concomitant]
     Active Substance: GABAPENTIN
  3. CLEAR EYES [Concomitant]
     Active Substance: NAPHAZOLINE HYDROCHLORIDE
     Indication: DRY EYE
     Route: 047

REACTIONS (6)
  - Eye irritation [Unknown]
  - Eye swelling [Recovered/Resolved]
  - Ocular hyperaemia [Recovered/Resolved]
  - Photosensitivity reaction [Recovering/Resolving]
  - Eye pain [Recovered/Resolved]
  - Visual impairment [Recovering/Resolving]

NARRATIVE: CASE EVENT DATE: 202004
